FAERS Safety Report 10430484 (Version 1)
Quarter: 2014Q3

REPORT INFORMATION
  Report Type: Spontaneous
  Country: CH (occurrence: None)
  Receive Date: 20140902
  Receipt Date: 20140902
  Transmission Date: 20150326
  Serious: Yes (Disabling)
  Sender: FDA-Public Use
  Company Number: 20140559

PATIENT
  Age: 33 Year
  Sex: Female

DRUGS (2)
  1. SODIUM CHLORIDE. [Concomitant]
     Active Substance: SODIUM CHLORIDE
  2. FERINJECT [Suspect]
     Active Substance: FERRIC CARBOXYMALTOSE
     Indication: IRON DEFICIENCY
     Dosage: 50 MG IN 250 ML NSS

REACTIONS (4)
  - Lymphadenopathy [None]
  - Infusion site extravasation [None]
  - Wrong technique in drug usage process [None]
  - Infusion site inflammation [None]

NARRATIVE: CASE EVENT DATE: 20140704
